FAERS Safety Report 14818367 (Version 1)
Quarter: 2018Q2

REPORT INFORMATION
  Report Type: Other
  Country: CA (occurrence: CA)
  Receive Date: 20180427
  Receipt Date: 20180427
  Transmission Date: 20180711
  Serious: Yes (Life-Threatening)
  Sender: FDA-Public Use
  Company Number: CA-APOTEX-2018AP011010

PATIENT
  Age: 55 Year
  Sex: Female
  Weight: 68.27 kg

DRUGS (1)
  1. APO-FLUCONAZOLE [Suspect]
     Active Substance: FLUCONAZOLE
     Indication: VAGINAL INFECTION
     Dosage: 1.5 DF, UNK
     Route: 048

REACTIONS (2)
  - Hypersensitivity [Recovered/Resolved]
  - Rosacea [Recovered/Resolved]
